FAERS Safety Report 14206471 (Version 1)
Quarter: 2017Q4

REPORT INFORMATION
  Report Type: Spontaneous
  Country: US (occurrence: US)
  Receive Date: 20171120
  Receipt Date: 20171120
  Transmission Date: 20180321
  Serious: No
  Sender: FDA-Public Use
  Company Number: US-009507513-1710USA014489

PATIENT
  Age: 23 Year
  Sex: Female
  Weight: 45.35 kg

DRUGS (1)
  1. NEXPLANON [Suspect]
     Active Substance: ETONOGESTREL
     Indication: CONTRACEPTION
     Dosage: RIGHT ARM- IMPLANT, EVERY 3 YEARS
     Route: 059
     Dates: start: 20161103

REACTIONS (3)
  - Menstruation irregular [Unknown]
  - Metrorrhagia [Unknown]
  - Amenorrhoea [Recovered/Resolved]

NARRATIVE: CASE EVENT DATE: 20161103
